FAERS Safety Report 6412003-6 (Version None)
Quarter: 2009Q4

REPORT INFORMATION
  Report Type: 
  Country: None (occurrence: None)
  Receive Date: 20091023
  Receipt Date: 20091019
  Transmission Date: 20100525
  Serious: Yes (Other)
  Sender: FDA-Public Use
  Company Number: US-AVENTIS-200919366US

PATIENT
  Sex: Male

DRUGS (5)
  1. LANTUS [Suspect]
     Dosage: DOSE: 86 UNITS IN AM AND 96 UNITS IN PM
     Route: 058
  2. APIDRA [Suspect]
     Dosage: DOSE: 24 UNITS WITH MEALS PLUS SLIDING SCALE
     Route: 058
  3. OPTICLIK (INSULIN INJECTION PEN) [Suspect]
  4. CARDIOVASCULAR SYSTEM DRUGS [Concomitant]
     Dosage: DOSE: UNK
  5. CHOLESTEROL- AND TRIGLYCERIDE REDUCERS [Concomitant]
     Dosage: DOSE: UNK

REACTIONS (2)
  - CATARACT [None]
  - VISUAL IMPAIRMENT [None]
